FAERS Safety Report 23963614 (Version 1)
Quarter: 2024Q2

REPORT INFORMATION
  Report Type: Spontaneous
  Country: US (occurrence: US)
  Receive Date: 20240611
  Receipt Date: 20240611
  Transmission Date: 20240715
  Serious: No
  Sender: FDA-Public Use
  Company Number: US-BAUSCH-BL-2024-008801

PATIENT
  Age: 81 Year
  Sex: Female

DRUGS (4)
  1. MESTINON [Suspect]
     Active Substance: PYRIDOSTIGMINE BROMIDE
     Indication: Myasthenia gravis
     Dosage: 60 MG, QID (ONE TABLET FOUR TIMES DAILY)
     Route: 048
  2. SYNTHROID [Concomitant]
     Active Substance: LEVOTHYROXINE SODIUM
     Indication: Product used for unknown indication
  3. XARELTO [Concomitant]
     Active Substance: RIVAROXABAN
     Indication: Product used for unknown indication
  4. LOSARTAN [Concomitant]
     Active Substance: LOSARTAN
     Indication: Product used for unknown indication

REACTIONS (3)
  - Abdominal discomfort [Unknown]
  - Product quality issue [Unknown]
  - Product size issue [Unknown]

NARRATIVE: CASE EVENT DATE: 20240501
